FAERS Safety Report 15946510 (Version 1)
Quarter: 2019Q1

REPORT INFORMATION
  Report Type: Spontaneous
  Country: NZ (occurrence: NZ)
  Receive Date: 20190212
  Receipt Date: 20190212
  Transmission Date: 20190417
  Serious: Yes (Other)
  Sender: FDA-Public Use
  Company Number: NZ-B.I. PHARMACEUTICALS,INC./RIDGEFIELD-2019-BI-005185

PATIENT
  Sex: Female
  Weight: 84 kg

DRUGS (4)
  1. PRADAXA [Suspect]
     Active Substance: DABIGATRAN ETEXILATE MESYLATE
     Indication: PRODUCT USED FOR UNKNOWN INDICATION
     Route: 065
  2. APIXABAN [Concomitant]
     Active Substance: APIXABAN
     Indication: PRODUCT USED FOR UNKNOWN INDICATION
     Route: 065
  3. PANTOPRAZOLE [Concomitant]
     Active Substance: PANTOPRAZOLE
     Indication: PRODUCT USED FOR UNKNOWN INDICATION
     Route: 065
  4. METOPROLOL. [Concomitant]
     Active Substance: METOPROLOL
     Indication: PRODUCT USED FOR UNKNOWN INDICATION
     Route: 065

REACTIONS (17)
  - Wheezing [Unknown]
  - Aortic valve incompetence [Unknown]
  - C-reactive protein increased [Unknown]
  - Left atrial dilatation [Unknown]
  - Dyspnoea [Unknown]
  - Haemorrhagic disorder [Unknown]
  - Right ventricular dilatation [Unknown]
  - Right atrial dilatation [Unknown]
  - Oedema peripheral [Unknown]
  - Tricuspid valve incompetence [Unknown]
  - Cough [Unknown]
  - Cardiac failure [Unknown]
  - Inferior vena cava dilatation [Unknown]
  - Pleural effusion [Unknown]
  - Hepatic vein dilatation [Unknown]
  - Aortic valve sclerosis [Unknown]
  - Fluid overload [Unknown]
